FAERS Safety Report 20032522 (Version 2)
Quarter: 2024Q2

REPORT INFORMATION
  Report Type: Spontaneous
  Country: PT (occurrence: PT)
  Receive Date: 20211103
  Receipt Date: 20240529
  Transmission Date: 20240715
  Serious: Yes (Other)
  Sender: FDA-Public Use
  Company Number: PT-009507513-2110PRT002292

PATIENT
  Age: 80 Year
  Sex: Male

DRUGS (1)
  1. PEMBROLIZUMAB [Suspect]
     Active Substance: PEMBROLIZUMAB
     Indication: Squamous cell carcinoma
     Dosage: UNK
     Dates: start: 201910, end: 202008

REACTIONS (6)
  - Aortic arteriosclerosis [Unknown]
  - Arteriosclerosis coronary artery [Unknown]
  - Skin hyperpigmentation [Unknown]
  - Therapy partial responder [Unknown]
  - Lichenoid keratosis [Recovered/Resolved]
  - Synovial cyst [Unknown]

NARRATIVE: CASE EVENT DATE: 20191201
